FAERS Safety Report 6038905-0 (Version None)
Quarter: 2009Q1

REPORT INFORMATION
  Report Type: 
  Country: None (occurrence: None)
  Receive Date: 20090115
  Receipt Date: 20090108
  Transmission Date: 20090719
  Serious: Yes (Other)
  Sender: FDA-Public Use
  Company Number: US-JNJFOC-20090101846

PATIENT
  Sex: Female
  Weight: 46.72 kg

DRUGS (4)
  1. IMODIUM A-D [Suspect]
     Route: 048
  2. IMODIUM A-D [Suspect]
     Indication: DIARRHOEA
     Dosage: SOMETIMES AN OUNCE (4 MG) SEVERAL TIMES PER DAY
     Route: 048
  3. GEMZAR [Concomitant]
     Indication: CHEMOTHERAPY
     Route: 042
  4. OTHER UNSPECIFIED MEDICATIONS [Concomitant]

REACTIONS (2)
  - HEPATIC FUNCTION ABNORMAL [None]
  - INCORRECT DOSE ADMINISTERED [None]
